FAERS Safety Report 18640358 (Version 1)
Quarter: 2020Q4

REPORT INFORMATION
  Report Type: Spontaneous
  Country: US (occurrence: US)
  Receive Date: 20201221
  Receipt Date: 20201221
  Transmission Date: 20210114
  Serious: No
  Sender: FDA-Public Use
  Company Number: US-CELLTRION INC.-2020US029889

PATIENT

DRUGS (1)
  1. TRUXIMA [Suspect]
     Active Substance: RITUXIMAB-ABBS
     Indication: AUTOIMMUNE HAEMOLYTIC ANAEMIA
     Dosage: 700 MG WEEKLY X4 ON 30 OCT 2020, 06 NOV 2020, 13 NOV 2020, AND 20 NOV 2020

REACTIONS (2)
  - Off label use [Unknown]
  - Product prescribing issue [Unknown]
